FAERS Safety Report 24367405 (Version 1)
Quarter: 2024Q3

REPORT INFORMATION
  Report Type: Spontaneous
  Country: JP (occurrence: JP)
  Receive Date: 20240926
  Receipt Date: 20240926
  Transmission Date: 20241016
  Serious: Yes (Other)
  Sender: BOEHRINGER INGELHEIM
  Company Number: JP-NBI-2024-BI-053529

PATIENT
  Age: 84 Year
  Sex: Female

DRUGS (1)
  1. LINAGLIPTIN [Suspect]
     Active Substance: LINAGLIPTIN
     Indication: Diabetes mellitus
     Dosage: DAILY DOSE: 5 MILLIGRAM(S)
     Route: 048

REACTIONS (1)
  - Pancreatic carcinoma [Unknown]
